FAERS Safety Report 17991318 (Version 1)
Quarter: 2020Q3

REPORT INFORMATION
  Report Type: Spontaneous
  Country: US (occurrence: US)
  Receive Date: 20200707
  Receipt Date: 20200707
  Transmission Date: 20201103
  Serious: Yes (Disabling, Other)
  Sender: FDA-Public Use
  Company Number: US-PURDUE PHARMA-USA-2020-0157144

PATIENT
  Sex: Female
  Weight: 70.75 kg

DRUGS (16)
  1. CYCLOBENZAPRINE. [Concomitant]
     Active Substance: CYCLOBENZAPRINE
     Indication: TENSION HEADACHE
     Dosage: 1 TAB 3X/DAILY
     Route: 048
  2. MOTRIN [Concomitant]
     Active Substance: IBUPROFEN
     Indication: PRODUCT USED FOR UNKNOWN INDICATION
     Dosage: 1 TAB X6HOURS/DAILY
     Route: 048
  3. NORCO [Suspect]
     Active Substance: ACETAMINOPHEN\HYDROCODONE BITARTRATE
     Indication: COUGH
     Dosage: 2, 5?325, Q6H
     Route: 048
  4. OSELTAMIVIR [Concomitant]
     Active Substance: OSELTAMIVIR
     Indication: PRODUCT USED FOR UNKNOWN INDICATION
     Route: 048
  5. FLEXERIL [Concomitant]
     Active Substance: CYCLOBENZAPRINE HYDROCHLORIDE
     Indication: MUSCLE SPASMS
  6. HYDROCODONE BITARTRATE AND ACETAMINOPHEN [Suspect]
     Active Substance: ACETAMINOPHEN\HYDROCODONE BITARTRATE
     Indication: PAIN
     Dosage: 5?325, Q6H
     Route: 048
  7. CYCLOBENZAPRINE. [Concomitant]
     Active Substance: CYCLOBENZAPRINE
     Indication: MUSCLE SPASMS
  8. FLEXERIL [Concomitant]
     Active Substance: CYCLOBENZAPRINE HYDROCHLORIDE
     Indication: TENSION HEADACHE
     Dosage: 5 MG, TID
     Route: 048
  9. OXYCONTIN [Suspect]
     Active Substance: OXYCODONE HYDROCHLORIDE
     Indication: PRODUCT USED FOR UNKNOWN INDICATION
     Dosage: UNK
     Route: 048
  10. NORCO [Suspect]
     Active Substance: ACETAMINOPHEN\HYDROCODONE BITARTRATE
     Indication: PAIN
     Dosage: 5?325, Q6H
     Route: 048
  11. MUCINEX [Concomitant]
     Active Substance: GUAIFENESIN
     Indication: PRODUCT USED FOR UNKNOWN INDICATION
     Dosage: UNK
     Route: 065
  12. PYRILAMINE. [Concomitant]
     Active Substance: PYRILAMINE
     Indication: PRODUCT USED FOR UNKNOWN INDICATION
     Route: 048
  13. TAMIFLU [Concomitant]
     Active Substance: OSELTAMIVIR PHOSPHATE
     Indication: PRODUCT USED FOR UNKNOWN INDICATION
     Dosage: 75 MG, BID
     Route: 048
  14. NORCO [Suspect]
     Active Substance: ACETAMINOPHEN\HYDROCODONE BITARTRATE
     Indication: PAIN
  15. TESSALON [Concomitant]
     Active Substance: BENZONATATE
     Indication: PRODUCT USED FOR UNKNOWN INDICATION
     Dosage: UNK
     Route: 065
  16. HYDROCODONE BITARTRATE AND ACETAMINOPHEN [Suspect]
     Active Substance: ACETAMINOPHEN\HYDROCODONE BITARTRATE
     Indication: COUGH

REACTIONS (5)
  - Drug dependence [Unknown]
  - Upper respiratory tract infection [Unknown]
  - Bronchitis [Unknown]
  - Learning disability [Unknown]
  - Influenza [Unknown]
